FAERS Safety Report 6655290-1 (Version None)
Quarter: 2010Q1

REPORT INFORMATION
  Report Type: 
  Country: None (occurrence: None)
  Receive Date: 20100324
  Receipt Date: 20100304
  Transmission Date: 20100710
  Serious: Yes (Other)
  Sender: FDA-Public Use
  Company Number: JP-SOLVAY-00310000050

PATIENT
  Age: 20 Year
  Sex: Female

DRUGS (11)
  1. LUVOX [Suspect]
     Indication: DEPRESSION
     Dosage: SEE IMAGE
     Route: 048
     Dates: start: 20090703, end: 20090716
  2. LUVOX [Suspect]
     Indication: DEPRESSION
     Dosage: SEE IMAGE
     Route: 048
     Dates: start: 20090717, end: 20090813
  3. LUVOX [Suspect]
     Indication: DEPRESSION
     Dosage: SEE IMAGE
     Route: 048
     Dates: start: 20090814, end: 20090917
  4. LUVOX [Suspect]
     Indication: DEPRESSION
     Dosage: SEE IMAGE
     Route: 048
     Dates: start: 20090918, end: 20091015
  5. LUVOX [Suspect]
     Indication: DEPRESSION
     Dosage: SEE IMAGE
     Route: 048
     Dates: start: 20091016, end: 20091029
  6. LUVOX [Suspect]
     Indication: DEPRESSION
     Dosage: SEE IMAGE
     Route: 048
     Dates: start: 20091030, end: 20091112
  7. LUVOX [Suspect]
     Indication: DEPRESSION
     Dosage: SEE IMAGE
     Route: 048
     Dates: start: 20091113, end: 20091120
  8. RONFLEMAN (BROTIZOLAM) [Suspect]
     Indication: INSOMNIA
     Dosage: 0.25 MILLIGRAM(S), ORAL; 4.25 MILLIGRAM(S), ORAL
     Route: 048
     Dates: start: 20091115, end: 20091115
  9. RONFLEMAN (BROTIZOLAM) [Suspect]
     Indication: INSOMNIA
     Dosage: 0.25 MILLIGRAM(S), ORAL; 4.25 MILLIGRAM(S), ORAL
     Route: 048
     Dates: start: 20091002, end: 20091116
  10. MEILAX (ETHYL LOFLAZEPATE) [Concomitant]
  11. JZOLOFT (SERTRALINE HYDROCHLORIDE) [Concomitant]

REACTIONS (8)
  - AGORAPHOBIA [None]
  - ANXIETY [None]
  - DISSOCIATIVE AMNESIA [None]
  - OVERDOSE [None]
  - SELF INJURIOUS BEHAVIOUR [None]
  - SOMNOLENCE [None]
  - SUICIDE ATTEMPT [None]
  - TENSION [None]
